FAERS Safety Report 8596363 (Version 13)
Quarter: 2012Q4

REPORT INFORMATION
  Report Type: 
  Country: GB (occurrence: GB)
  Receive Date: 20120605
  Receipt Date: 20120917
  Transmission Date: 20130627
  Serious: Yes (Hospitalization, Other)
  Sender: FDA-Public Use
  Company Number: PHFR2012GB002672

PATIENT
  Age: 57 Year
  Sex: Female

DRUGS (3)
  1. CLOZARIL [Suspect]
     Indication: SCHIZOPHRENIA
     Dosage: 200 mg, QD (75 mg mane and 125 mg nocte)
     Route: 048
     Dates: start: 20050715
  2. DULOXETINE [Concomitant]
     Dosage: 60 mg, QD
     Route: 048
  3. EPILIM CHRONO [Concomitant]
     Dosage: 200 mg, QD
     Route: 048

REACTIONS (6)
  - Platelet count decreased [Unknown]
  - Neutropenia [Recovered/Resolved]
  - White blood cell count decreased [Unknown]
  - Breast cancer [Not Recovered/Not Resolved]
  - Neutrophil count increased [Unknown]
  - White blood cell count increased [Unknown]
